FAERS Safety Report 16594348 (Version 1)
Quarter: 2019Q3

REPORT INFORMATION
  Report Type: Spontaneous
  Country: FR (occurrence: FR)
  Receive Date: 20190718
  Receipt Date: 20190718
  Transmission Date: 20191004
  Serious: Yes (Hospitalization)
  Sender: FDA-Public Use
  Company Number: FR-TEVA-2019-FR-1078166

PATIENT
  Age: 72 Year
  Sex: Female
  Weight: 109 kg

DRUGS (5)
  1. PAROXETINE (CHLORHYDRATE DE) HEMIHYDRATE [Suspect]
     Active Substance: PAROXETINE HYDROCHLORIDE
     Indication: POISONING DELIBERATE
     Dosage: UNKNOWN DOSE
     Route: 048
     Dates: start: 20190605, end: 20190605
  2. SELOKEN L P 200 MG, COMPRIM? ? LIB?RATION PROLONG?E [Suspect]
     Active Substance: METOPROLOL TARTRATE
     Indication: POISONING DELIBERATE
     Dosage: 800MG PER TOTAL
     Route: 048
     Dates: start: 20190605, end: 20190605
  3. ALPRAZOLAM. [Suspect]
     Active Substance: ALPRAZOLAM
     Indication: POISONING DELIBERATE
     Dosage: UNKNOWN DOSE
     Route: 048
     Dates: start: 20190605, end: 20190605
  4. LERCANIDIPINE (CHLORHYDRATE DE) [Suspect]
     Active Substance: LERCANIDIPINE HYDROCHLORIDE
     Indication: POISONING DELIBERATE
     Dosage: 40MG PER TOTAL
     Route: 048
     Dates: start: 20190605, end: 20190605
  5. DOLIPRANE [Suspect]
     Active Substance: ACETAMINOPHEN
     Indication: POISONING DELIBERATE
     Dosage: 12GM PER TOTAL
     Route: 048
     Dates: start: 20190605, end: 20190605

REACTIONS (3)
  - Somnolence [Recovered/Resolved]
  - Hypertension [Recovered/Resolved]
  - Poisoning deliberate [Recovered/Resolved]

NARRATIVE: CASE EVENT DATE: 20190605
